FAERS Safety Report 9496980 (Version 1)
Quarter: 2013Q3

REPORT INFORMATION
  Report Type: Spontaneous
  Country: US (occurrence: None)
  Receive Date: 20130903
  Receipt Date: 20130903
  Transmission Date: 20140515
  Serious: Yes (Life-Threatening)
  Sender: FDA-Public Use
  Company Number: None

PATIENT
  Age: 88 Year
  Sex: Female
  Weight: 51.71 kg

DRUGS (2)
  1. NITROFURANTOIN [Suspect]
     Indication: CYSTITIS
     Route: 048
     Dates: start: 20110317, end: 20120924
  2. NITROFURANTOIN [Suspect]
     Indication: INFECTION
     Route: 048
     Dates: start: 20110317, end: 20120924

REACTIONS (3)
  - Weight decreased [None]
  - Interstitial lung disease [None]
  - Uterine leiomyoma [None]
